FAERS Safety Report 4715816-1 (Version None)
Quarter: 2005Q3

REPORT INFORMATION
  Report Type: 
  Country: None (occurrence: None)
  Receive Date: 20050713
  Receipt Date: 20050630
  Transmission Date: 20060218
  Serious: Yes (Hospitalization, Other)
  Sender: FDA-Public Use
  Company Number: HQWYE333710NOV04

PATIENT
  Age: 52 Year
  Sex: Male
  Weight: 81.27 kg

DRUGS (16)
  1. RAPAMUNE [Suspect]
     Indication: PROPHYLAXIS AGAINST TRANSPLANT REJECTION
     Dosage: 2 MG X 2, THEN 1 M X 1 DAILY
     Dates: start: 20050409
  2. PREDNISONE [Concomitant]
  3. SODIUM BICARBONATE IN PLASTIC CONTAINER [Concomitant]
  4. PREVACID [Concomitant]
  5. ACTIGALL [Concomitant]
  6. ASPIRIN [Concomitant]
  7. CLONADINE (CLONADINE) [Concomitant]
  8. FISH OIL , HYDROGENATED 9FISH OIL, HYDROGRENATED) [Concomitant]
  9. GLIPIZIDE [Concomitant]
  10. LASIX [Concomitant]
  11. MAGNESIUM (MAGNESIUM) [Concomitant]
  12. METOPROLOL TARTRATE [Concomitant]
  13. ALLOPURINOL [Concomitant]
  14. FOLIC ACID [Concomitant]
  15. LIPITOR [Concomitant]
  16. RAPAMUNE [Suspect]

REACTIONS (6)
  - BLOOD CREATINE INCREASED [None]
  - BLOOD GLUCOSE INCREASED [None]
  - BLOOD UREA INCREASED [None]
  - GLOMERULAR FILTRATION RATE DECREASED [None]
  - HYPERTENSIVE CRISIS [None]
  - PROTEIN URINE PRESENT [None]
